FAERS Safety Report 9507074 (Version 1)
Quarter: 2013Q1

REPORT INFORMATION
  Report Type: Spontaneous
  Country: US (occurrence: None)
  Receive Date: 20130305
  Receipt Date: 20130305
  Transmission Date: 20140127
  Serious: Yes (Hospitalization)
  Sender: FDA-Public Use
  Company Number: 163-21880-12030259

PATIENT
  Age: 66 Year
  Sex: Female

DRUGS (32)
  1. REVLIMID (LENALIDOMIDE) (25 MILLIGRAM, CAPSULES) [Suspect]
     Indication: PLASMA CELL MYELOMA
     Dosage: 25 MG, DAILY X 21 DAYS , PO
     Route: 048
     Dates: start: 20110511, end: 20111125
  2. EG GEST [Concomitant]
  3. FIBER PLAN [Concomitant]
  4. NUTRIFERON [Concomitant]
  5. OMEGA GUARD [Concomitant]
  6. ZETIA [Concomitant]
  7. KLOR CON [Concomitant]
  8. COUMADIN (WARFARIN SODIUM) [Concomitant]
  9. CARDIZEM [Concomitant]
  10. VITAMINS [Concomitant]
  11. FOLIC ACID B-G B-12 (FOLIC ACID B-6 + B--12) [Concomitant]
  12. CALCIUM CARBONATE [Concomitant]
  13. CALCIUM CITRATE [Concomitant]
  14. CALCIUM MALEATE [Concomitant]
  15. VITAMIN D (ERGOCALCIFEROL) [Concomitant]
  16. VITAMIN K [Concomitant]
  17. MAGNESIUM [Concomitant]
  18. ZINC [Concomitant]
  19. COPPER [Concomitant]
  20. MANGANESE AND BORON [Concomitant]
  21. LASIX (FUROSEMIDE) [Concomitant]
  22. LORAZEPAM [Concomitant]
  23. FLUTICASONE PROPIONATE [Concomitant]
  24. CHOLESTEROL REDUCTION COMPLEX (ALL OTHER THERAPEUTIC PRODUCTS) [Concomitant]
  25. PROVENTIL [Concomitant]
  26. TIMOLOL [Concomitant]
  27. DEXAMETHASONE [Concomitant]
  28. PROCHLORPERAZINE [Concomitant]
  29. FOSAMAX (ALENDRONATE SODIUM) [Concomitant]
  30. VIRIX [Concomitant]
  31. CINCH PROTEIN DRING (PROTEIN SUPPLEMENTS) [Concomitant]
  32. PLASMA [Concomitant]

REACTIONS (3)
  - Large intestine perforation [None]
  - Pleural effusion [None]
  - Diverticulum intestinal [None]
